FAERS Safety Report 21921183 (Version 1)
Quarter: 2023Q1

REPORT INFORMATION
  Report Type: Spontaneous
  Country: AT (occurrence: AT)
  Receive Date: 20230127
  Receipt Date: 20230127
  Transmission Date: 20230418
  Serious: Yes (Other)
  Sender: FDA-Public Use
  Company Number: None

PATIENT

DRUGS (1)
  1. XCOPRI [Suspect]
     Active Substance: CENOBAMATE
     Indication: Product used for unknown indication
     Route: 048
     Dates: start: 20220627, end: 20221116

REACTIONS (1)
  - Electrocardiogram QT shortened [Recovered/Resolved]

NARRATIVE: CASE EVENT DATE: 20221116
